FAERS Safety Report 5206556-3 (Version None)
Quarter: 2007Q1

REPORT INFORMATION
  Report Type: 
  Country: None (occurrence: None)
  Receive Date: 20070111
  Receipt Date: 20070102
  Transmission Date: 20070707
  Serious: Yes (Other)
  Sender: FDA-Public Use
  Company Number: US-ELI_LILLY_AND_COMPANY-US200608002970

PATIENT
  Age: 70 Year
  Sex: Female

DRUGS (10)
  1. FORTEO [Suspect]
     Indication: OSTEOPOROSIS
     Dosage: 20 UG, UNK
     Dates: start: 20060101
  2. SYNTHROID [Concomitant]
     Dosage: 102 MG, DAILY (1/D)
  3. ALLOPURINOL SODIUM [Concomitant]
     Indication: GOUT
     Dosage: 1000 MG, DAILY (1/D)
  4. TRIAMTERENE [Concomitant]
     Dosage: 37.5 UNK, UNK
  5. BENICAR                                 /USA/ [Concomitant]
     Indication: BLOOD PRESSURE
     Dosage: 40 MG, UNK
  6. ACIPHEX [Concomitant]
     Indication: GASTROOESOPHAGEAL REFLUX DISEASE
     Dosage: 20 MG, UNK
  7. GABAPENTIN [Concomitant]
     Indication: NERVOUS SYSTEM DISORDER
  8. CALTRATE [Concomitant]
     Dosage: 600 UNK, DAILY (1/D)
  9. ASPIRIN [Concomitant]
  10. ALEVE [Concomitant]
     Indication: PAIN

REACTIONS (15)
  - ARTHRALGIA [None]
  - BACK PAIN [None]
  - BLOOD CHOLESTEROL INCREASED [None]
  - DEPRESSION [None]
  - DIABETES MELLITUS [None]
  - FATIGUE [None]
  - FEAR [None]
  - GAIT DISTURBANCE [None]
  - HAEMOGLOBIN DECREASED [None]
  - MUSCULOSKELETAL PAIN [None]
  - OSTEOARTHRITIS [None]
  - PAIN [None]
  - RENAL FAILURE CHRONIC [None]
  - RENAL IMPAIRMENT [None]
  - VITAMIN B12 DEFICIENCY [None]
